FAERS Safety Report 13790653 (Version 1)
Quarter: 2017Q3

REPORT INFORMATION
  Report Type: Spontaneous
  Country: US (occurrence: US)
  Receive Date: 20170725
  Receipt Date: 20170725
  Transmission Date: 20171127
  Serious: No
  Sender: FDA-Public Use
  Company Number: US-GALDERMA-US17000824

PATIENT
  Age: 28 Year
  Sex: Female
  Weight: 62.14 kg

DRUGS (4)
  1. ACNE CLEANSER [Concomitant]
     Active Substance: BENZOYL PEROXIDE
     Indication: ACNE
     Route: 061
  2. DIFFERIN GEL [Suspect]
     Active Substance: ADAPALENE
     Indication: ACNE
     Dosage: 1%
     Route: 061
     Dates: start: 20170130
  3. ACNE TREATMENT [Concomitant]
     Active Substance: BENZOYL PEROXIDE
     Indication: ACNE
     Route: 061
  4. ACNE MOISTURIZER [Concomitant]
     Active Substance: SALICYLIC ACID
     Indication: ACNE
     Route: 061

REACTIONS (6)
  - Skin exfoliation [Recovered/Resolved]
  - Skin tightness [Recovered/Resolved]
  - Skin hyperpigmentation [Not Recovered/Not Resolved]
  - Skin burning sensation [Unknown]
  - Paraesthesia [Unknown]
  - Dry skin [Recovered/Resolved]

NARRATIVE: CASE EVENT DATE: 20170130
